FAERS Safety Report 19583656 (Version 1)
Quarter: 2021Q3

REPORT INFORMATION
  Report Type: Spontaneous
  Country: DE (occurrence: DE)
  Receive Date: 20210720
  Receipt Date: 20210720
  Transmission Date: 20211014
  Serious: Yes (Other)
  Sender: FDA-Public Use
  Company Number: NVSC2021DE155429

PATIENT
  Sex: Male

DRUGS (2)
  1. VALSARTAN. [Suspect]
     Active Substance: VALSARTAN
     Indication: PRODUCT USED FOR UNKNOWN INDICATION
     Dosage: 320 MG, QD (MORNING)
     Route: 065
  2. VALSARTAN HEUMANN [Suspect]
     Active Substance: VALSARTAN
     Indication: PRODUCT USED FOR UNKNOWN INDICATION
     Dosage: 320 MG
     Route: 065

REACTIONS (10)
  - Mental impairment [Unknown]
  - Anxiety disorder [Unknown]
  - Sleep disorder [Unknown]
  - Nervousness [Unknown]
  - Fear of disease [Unknown]
  - Dyspnoea [Unknown]
  - Impaired quality of life [Unknown]
  - Fatigue [Unknown]
  - Hyperhidrosis [Unknown]
  - Nightmare [Unknown]
